FAERS Safety Report 5342244-0 (Version None)
Quarter: 2007Q2

REPORT INFORMATION
  Report Type: 
  Country: None (occurrence: None)
  Receive Date: 20070416
  Receipt Date: 20070305
  Transmission Date: 20071010
  Serious: No
  Sender: FDA-Public Use
  Company Number: 2007SP000781

PATIENT
  Age: 55 Year
  Sex: Male
  Weight: 98.8842 kg

DRUGS (5)
  1. LUNESTA [Suspect]
     Indication: INSOMNIA
     Dosage: SEE IMAGE
     Route: 048
     Dates: start: 20070301, end: 20070301
  2. LUNESTA [Suspect]
     Indication: INSOMNIA
     Dosage: SEE IMAGE
     Route: 048
     Dates: start: 20070303, end: 20070303
  3. LEXAPRO [Suspect]
     Indication: DEPRESSION
     Dosage: 10 MG;QD;ORAL
     Route: 048
     Dates: start: 20070301
  4. PAXIL [Concomitant]
  5. PRAVACHOL [Concomitant]

REACTIONS (1)
  - MIDDLE INSOMNIA [None]
